FAERS Safety Report 7594502-7 (Version None)
Quarter: 2011Q2

REPORT INFORMATION
  Report Type: 
  Country: None (occurrence: None)
  Receive Date: 20110628
  Receipt Date: 20110615
  Transmission Date: 20111010
  Serious: Yes (Hospitalization, Other)
  Sender: FDA-Public Use
  Company Number: DKLU1071347

PATIENT
  Age: 8 Year
  Sex: Female
  Weight: 13.6 kg

DRUGS (5)
  1. TRILEPTAL [Concomitant]
  2. CLONAZEPAM [Concomitant]
  3. SABRIL [Suspect]
     Indication: EPILEPSY
     Dosage: 375 MG MILLIGRAM(S), 2 IN 1 D, ORAL
     Route: 048
     Dates: start: 20110428
  4. BANZEL (RUFINAMIDE) [Concomitant]
  5. LEVOCARNITINE (LEVOCARNITINE) [Concomitant]

REACTIONS (4)
  - HYPOGLYCAEMIC COMA [None]
  - BLOOD MAGNESIUM INCREASED [None]
  - BLOOD POTASSIUM INCREASED [None]
  - BLOOD PRESSURE DECREASED [None]
